FAERS Safety Report 13821173 (Version 1)
Quarter: 2017Q3

REPORT INFORMATION
  Report Type: Spontaneous
  Country: LT (occurrence: LT)
  Receive Date: 20170801
  Receipt Date: 20170801
  Transmission Date: 20171127
  Serious: Yes (Hospitalization)
  Sender: FDA-Public Use
  Company Number: LT-ORION CORPORATION ORION PHARMA-ENT2016-0253

PATIENT
  Sex: Male

DRUGS (2)
  1. ESCITALOPRAM ORION [Suspect]
     Active Substance: ESCITALOPRAM OXALATE
     Dosage: NOT USED
     Route: 048
  2. ENTACAPONE (TRADE NAME UNKNOWN) [Suspect]
     Active Substance: ENTACAPONE
     Route: 065

REACTIONS (6)
  - Nausea [Unknown]
  - Dizziness [Unknown]
  - Drug dispensing error [Unknown]
  - Wrong drug administered [Unknown]
  - Asthenia [Unknown]
  - Gait disturbance [Unknown]
